FAERS Safety Report 7081976-3 (Version None)
Quarter: 2010Q4

REPORT INFORMATION
  Report Type: 
  Country: None (occurrence: None)
  Receive Date: 20101103
  Receipt Date: 20101021
  Transmission Date: 20110411
  Serious: Yes (Other)
  Sender: FDA-Public Use
  Company Number: BR-PFIZER INC-2010120925

PATIENT
  Age: 56 Year
  Sex: Female
  Weight: 76 kg

DRUGS (15)
  1. LYRICA [Suspect]
     Indication: BACK PAIN
     Dosage: 75 MG, 1X/DAY
     Route: 048
     Dates: end: 20100916
  2. LYRICA [Suspect]
     Indication: ARTHRALGIA
  3. GEODON [Suspect]
     Indication: SLEEP DISORDER
     Dosage: 80 MG, 1X/DAY
     Route: 048
     Dates: start: 20090922
  4. FRONTAL [Suspect]
     Indication: ANXIETY
     Dosage: UNK
     Route: 048
  5. ARTRODAR [Suspect]
     Indication: OSTEOARTHRITIS
     Dosage: UNK
     Dates: start: 20100401, end: 20101012
  6. LIPITOR [Concomitant]
     Indication: BLOOD CHOLESTEROL INCREASED
     Dosage: UNK
     Dates: start: 20090101
  7. EUTHYROX [Concomitant]
     Indication: HYPOTHYROIDISM
     Dosage: UNK
  8. LANSOPRAZOLE [Concomitant]
     Indication: GASTRITIS PROPHYLAXIS
     Dosage: UNK
     Dates: start: 20040101
  9. SEROQUEL [Concomitant]
     Indication: RAPID EYE MOVEMENTS SLEEP ABNORMAL
     Dosage: UNK
  10. ZOLPIDEM [Concomitant]
     Indication: RAPID EYE MOVEMENTS SLEEP ABNORMAL
     Dosage: UNK
  11. RIVOTRIL [Concomitant]
     Indication: RAPID EYE MOVEMENTS SLEEP ABNORMAL
     Dosage: UNK
  12. MODURETIC 5-50 [Concomitant]
     Indication: BLOOD PRESSURE ABNORMAL
     Dosage: UNK
     Dates: start: 20090101, end: 20101021
  13. MODURETIC 5-50 [Concomitant]
     Indication: STRESS
  14. MIOSAN [Concomitant]
     Dosage: UNK
     Dates: start: 20100401, end: 20101012
  15. ZOLPIDEM TARTRATE [Concomitant]
     Dosage: UNK

REACTIONS (3)
  - DIZZINESS [None]
  - FEELING DRUNK [None]
  - PURPURA [None]
